FAERS Safety Report 5845899-7 (Version None)
Quarter: 2008Q3

REPORT INFORMATION
  Report Type: 
  Country: None (occurrence: None)
  Receive Date: 20080814
  Receipt Date: 20080806
  Transmission Date: 20090109
  Serious: Yes (Other)
  Sender: FDA-Public Use
  Company Number: US-ELI_LILLY_AND_COMPANY-US200806005681

PATIENT
  Sex: Male

DRUGS (16)
  1. BYETTA [Suspect]
     Indication: TYPE 2 DIABETES MELLITUS
     Dosage: 5 UG, 2/D
     Route: 058
     Dates: start: 20070901, end: 20070101
  2. BYETTA [Suspect]
     Dosage: 10 UG, 2/D
     Route: 058
     Dates: start: 20070101, end: 20080622
  3. METFORMIN HCL [Concomitant]
     Indication: TYPE 2 DIABETES MELLITUS
     Dosage: 1000 MG, 2/D
     Route: 048
  4. LANTUS [Concomitant]
     Indication: TYPE 2 DIABETES MELLITUS
     Route: 058
  5. STARLIX [Concomitant]
     Dosage: 120 MG, UNKNOWN
     Route: 048
  6. SYNTHROID [Concomitant]
     Indication: HYPOTHYROIDISM
     Dosage: 0.025 MG, UNKNOWN
     Route: 048
  7. PLAVIX [Concomitant]
     Indication: CORONARY ARTERY DISEASE
     Dosage: 75 MG, UNKNOWN
     Route: 048
  8. LASIX [Concomitant]
     Indication: CORONARY ARTERY DISEASE
     Dosage: 40 MG, UNKNOWN
     Route: 048
  9. K-DUR [Concomitant]
     Indication: CORONARY ARTERY DISEASE
     Dosage: 20 MEQ, UNKNOWN
     Route: 048
  10. COREG [Concomitant]
     Indication: CORONARY ARTERY DISEASE
     Dosage: 80 MG, UNKNOWN
     Route: 048
  11. NEXIUM [Concomitant]
     Dosage: 40 MG, UNKNOWN
     Route: 048
  12. ATACAND [Concomitant]
     Indication: CORONARY ARTERY DISEASE
     Dosage: 32 MG, UNKNOWN
  13. NIASPAN [Concomitant]
     Indication: CORONARY ARTERY DISEASE
     Dosage: 500 MG, UNKNOWN
  14. ASPIRIN [Concomitant]
     Indication: CORONARY ARTERY DISEASE
     Dosage: 81 MG, UNKNOWN
  15. FOLIC ACID [Concomitant]
     Dosage: UNK, UNKNOWN
  16. MULTI-VITAMIN [Concomitant]
     Dosage: UNK, UNKNOWN

REACTIONS (4)
  - BLOOD GLUCOSE FLUCTUATION [None]
  - DIARRHOEA [None]
  - DIZZINESS [None]
  - PROSTATE CANCER [None]
